FAERS Safety Report 5542460-9 (Version None)
Quarter: 2007Q4

REPORT INFORMATION
  Report Type: 
  Country: None (occurrence: None)
  Receive Date: 20071210
  Receipt Date: 20071128
  Transmission Date: 20080405
  Serious: Yes (Hospitalization)
  Sender: FDA-Public Use
  Company Number: ES-ELI_LILLY_AND_COMPANY-ES200712000070

PATIENT
  Age: 89 Year
  Sex: Female

DRUGS (6)
  1. FORTEO [Suspect]
     Indication: OSTEOPOROSIS
     Dosage: 20 UG, DAILY (1/D)
     Route: 058
     Dates: start: 20070601, end: 20071001
  2. IBERCAL [Concomitant]
  3. MANIDON [Concomitant]
  4. KARVEA [Concomitant]
  5. ALDACTONE [Concomitant]
  6. ADIRO [Concomitant]

REACTIONS (2)
  - HIP ARTHROPLASTY [None]
  - PULMONARY OEDEMA [None]
